FAERS Safety Report 9458427 (Version 1)
Quarter: 2013Q3

REPORT INFORMATION
  Report Type: Spontaneous
  Country: DE (occurrence: DE)
  Receive Date: 20130814
  Receipt Date: 20130814
  Transmission Date: 20140515
  Serious: Yes (Hospitalization, Other)
  Sender: FDA-Public Use
  Company Number: GXKR2013DE002679

PATIENT
  Age: 1 Day
  Sex: Male
  Weight: 2.5 kg

DRUGS (1)
  1. LAMOTRIGINE [Suspect]
     Dosage: UNKNOWN MATERNAL DOSE (0.-35.3 GESTATIONAL WEEK)
     Route: 064

REACTIONS (4)
  - Premature baby [Recovered/Resolved]
  - Apnoea neonatal [Recovered/Resolved]
  - Extrasystoles [Recovering/Resolving]
  - Foetal exposure during pregnancy [Unknown]
